FAERS Safety Report 9477989 (Version 1)
Quarter: 2013Q3

REPORT INFORMATION
  Report Type: Spontaneous
  Country: ES (occurrence: ES)
  Receive Date: 20130827
  Receipt Date: 20130827
  Transmission Date: 20140515
  Serious: Yes (Other)
  Sender: FDA-Public Use
  Company Number: PHHY2013ES090468

PATIENT
  Age: 56 Year
  Sex: 0

DRUGS (2)
  1. CICLOSPORIN [Suspect]
     Indication: HEART TRANSPLANT
     Dosage: 100 MG, PER DAY
  2. CICLOSPORIN [Suspect]
     Dosage: 50 MG, PER DAY

REACTIONS (3)
  - Sebaceous hyperplasia [Not Recovered/Not Resolved]
  - Skin lesion [Not Recovered/Not Resolved]
  - Papule [Not Recovered/Not Resolved]
